FAERS Safety Report 7197544-9 (Version None)
Quarter: 2010Q4

REPORT INFORMATION
  Report Type: 
  Country: None (occurrence: None)
  Receive Date: 20101213
  Receipt Date: 20101208
  Transmission Date: 20110411
  Serious: Yes (Other)
  Sender: FDA-Public Use
  Company Number: PHHY2009GB23544

PATIENT
  Age: 72 Year
  Sex: Male

DRUGS (1)
  1. VISUDYNE [Suspect]
     Indication: CHOROIDAL NEOVASCULARISATION

REACTIONS (4)
  - MACULAR HOLE [None]
  - RETINAL ISCHAEMIA [None]
  - RETINAL OEDEMA [None]
  - VISUAL ACUITY REDUCED [None]
